FAERS Safety Report 20473516 (Version 1)
Quarter: 2022Q1

REPORT INFORMATION
  Report Type: Spontaneous
  Country: US (occurrence: US)
  Receive Date: 20220215
  Receipt Date: 20220215
  Transmission Date: 20220423
  Serious: No
  Sender: FDA-Public Use
  Company Number: US-ALLERGAN-2110283US

PATIENT
  Age: 21 Year
  Sex: Male

DRUGS (2)
  1. FABIOR [Suspect]
     Active Substance: TAZAROTENE
     Indication: Acne
     Dosage: QD
     Route: 061
     Dates: start: 20210109
  2. DAPSONE [Concomitant]
     Active Substance: DAPSONE
     Dosage: UNK, QAM

REACTIONS (4)
  - Skin wrinkling [Not Recovered/Not Resolved]
  - Rash papular [Not Recovered/Not Resolved]
  - Skin discolouration [Not Recovered/Not Resolved]
  - Pruritus [Not Recovered/Not Resolved]

NARRATIVE: CASE EVENT DATE: 20210216
